FAERS Safety Report 6053028-2 (Version None)
Quarter: 2009Q1

REPORT INFORMATION
  Report Type: 
  Country: None (occurrence: None)
  Receive Date: 20090127
  Receipt Date: 20090116
  Transmission Date: 20090719
  Serious: Yes (Other)
  Sender: FDA-Public Use
  Company Number: US-JNJFOC-20090104011

PATIENT
  Sex: Male

DRUGS (1)
  1. REMICADE [Suspect]
     Indication: PSORIASIS
     Dosage: RECEIVED ^MULTIPLE DOSES^ OF INFLIXIMAB
     Route: 042

REACTIONS (1)
  - PERIPHERAL EMBOLISM [None]
